FAERS Safety Report 4757120-1 (Version None)
Quarter: 2005Q3

REPORT INFORMATION
  Report Type: 
  Country: None (occurrence: None)
  Receive Date: 20050829
  Receipt Date: 20050815
  Transmission Date: 20060218
  Serious: Yes (Other)
  Sender: FDA-Public Use
  Company Number: 2005114768

PATIENT
  Age: 56 Year
  Sex: Female

DRUGS (5)
  1. EPIRUBICIN [Suspect]
     Indication: BREAST CANCER
     Dosage: 120 MG, INTRAVENOUS
     Route: 042
     Dates: start: 20050712, end: 20050712
  2. ZOMETA [Suspect]
     Indication: BREAST CANCER
     Dosage: 4 MG, INTRAVENOUS
     Route: 042
     Dates: start: 20050412, end: 20050712
  3. TAXOTERE [Suspect]
     Indication: BREAST CANCER
     Dosage: 120 MG, INTRAVENOUS
     Route: 042
     Dates: start: 20050712, end: 20050712
  4. MORPHINE [Concomitant]
  5. DEXAMETHASONE [Concomitant]

REACTIONS (1)
  - INTERVERTEBRAL DISC PROTRUSION [None]
